FAERS Safety Report 23470756 (Version 1)
Quarter: 2024Q1

REPORT INFORMATION
  Report Type: Spontaneous
  Country: FR (occurrence: FR)
  Receive Date: 20240202
  Receipt Date: 20240202
  Transmission Date: 20240409
  Serious: Yes (Hospitalization)
  Sender: FDA-Public Use
  Company Number: None

PATIENT
  Age: 66 Year
  Sex: Male
  Weight: 106 kg

DRUGS (1)
  1. BAVENCIO [Suspect]
     Active Substance: AVELUMAB
     Indication: Bladder transitional cell carcinoma stage IV
     Route: 042
     Dates: start: 20230818, end: 20230901

REACTIONS (6)
  - Acute kidney injury [Recovered/Resolved]
  - Muscular weakness [Recovering/Resolving]
  - Exophthalmos [Recovering/Resolving]
  - Hepatitis [Recovered/Resolved]
  - Autoimmune myositis [Recovering/Resolving]
  - Autoimmune myocarditis [Recovering/Resolving]

NARRATIVE: CASE EVENT DATE: 20230913
